FAERS Safety Report 22132444 (Version 1)
Quarter: 2023Q1

REPORT INFORMATION
  Report Type: Spontaneous
  Country: AR (occurrence: AR)
  Receive Date: 20230323
  Receipt Date: 20230323
  Transmission Date: 20230418
  Serious: Yes (Hospitalization, Other)
  Sender: FDA-Public Use
  Company Number: AR-002147023-NVSC2023AR062746

PATIENT
  Sex: Female

DRUGS (1)
  1. ANAFRANIL [Suspect]
     Active Substance: CLOMIPRAMINE HYDROCHLORIDE
     Indication: Depression
     Dosage: 75 MG, QD
     Route: 048
     Dates: start: 202212

REACTIONS (7)
  - Cardiac failure [Unknown]
  - Coma [Unknown]
  - Feeling abnormal [Unknown]
  - Viral infection [Unknown]
  - Systolic dysfunction [Unknown]
  - Depression [Unknown]
  - Off label use [Unknown]
